FAERS Safety Report 5813765-9 (Version None)
Quarter: 2008Q3

REPORT INFORMATION
  Report Type: 
  Country: None (occurrence: None)
  Receive Date: 20080717
  Receipt Date: 20080709
  Transmission Date: 20090109
  Serious: Yes (Other)
  Sender: FDA-Public Use
  Company Number: PHBS2008ES04996

PATIENT
  Age: 37 Year
  Sex: Male

DRUGS (1)
  1. DICLOFENAC [Suspect]
     Indication: ARTHRALGIA
     Dosage: 50 MG, TID
     Route: 065

REACTIONS (21)
  - ANAEMIA [None]
  - AORTIC DILATATION [None]
  - AORTIC VALVE INCOMPETENCE [None]
  - BLOOD PRESSURE INCREASED [None]
  - CARDIAC MURMUR [None]
  - CHEST X-RAY ABNORMAL [None]
  - ELECTROCARDIOGRAM ABNORMAL [None]
  - ELECTROPHORESIS PROTEIN [None]
  - GASTROINTESTINAL HAEMORRHAGE [None]
  - HAEMOGLOBIN DECREASED [None]
  - HEPATITIS B POSITIVE [None]
  - LEFT ATRIAL HYPERTROPHY [None]
  - LEFT VENTRICULAR HYPERTROPHY [None]
  - MEAN CELL VOLUME DECREASED [None]
  - OEDEMA PERIPHERAL [None]
  - PERICARDIAL EFFUSION [None]
  - PLEURAL EFFUSION [None]
  - PULMONARY HYPERTENSION [None]
  - SERUM FERRITIN DECREASED [None]
  - SYPHILIS TEST POSITIVE [None]
  - TRICUSPID VALVE INCOMPETENCE [None]
